FAERS Safety Report 15718657 (Version 1)
Quarter: 2018Q4

REPORT INFORMATION
  Report Type: Spontaneous
  Country: FR (occurrence: FR)
  Receive Date: 20181213
  Receipt Date: 20181213
  Transmission Date: 20190205
  Serious: Yes (Life-Threatening, Other)
  Sender: FDA-Public Use
  Company Number: FR-GLAXOSMITHKLINE-FR2018222835

PATIENT
  Age: 50 Year
  Sex: Female
  Weight: 74 kg

DRUGS (6)
  1. CISATRACURIUM BESILATE [Suspect]
     Active Substance: CISATRACURIUM BESYLATE
     Indication: ANAESTHESIA
     Dosage: IN TOTAL
     Route: 040
     Dates: start: 20181115, end: 20181115
  2. SUFENTANIL [Suspect]
     Active Substance: SUFENTANIL
     Indication: ANAESTHESIA
     Dosage: 20 MG EN BOLUS PUIS PERFUSION 10 MG
     Route: 041
     Dates: start: 20181115, end: 20181115
  3. SEVOFLURANE. [Suspect]
     Active Substance: SEVOFLURANE
     Indication: ANAESTHESIA
     Dosage: UNK
     Route: 055
     Dates: start: 20181115, end: 20181115
  4. DALACINE (CLINDAMYCIN HYDROCHLORIDE) [Suspect]
     Active Substance: CLINDAMYCIN HYDROCHLORIDE
     Indication: ANTIBIOTIC PROPHYLAXIS
     Dosage: IN TOTAL
     Route: 041
     Dates: start: 20181115, end: 20181115
  5. SALBUTAMOL [Suspect]
     Active Substance: ALBUTEROL
     Indication: PROPHYLAXIS
     Dosage: IN TOTAL
     Route: 055
     Dates: start: 20181115, end: 20181115
  6. THIOPENTAL SODIQUE [Suspect]
     Active Substance: THIOPENTAL SODIUM
     Indication: ANAESTHESIA
     Dosage: IN TOTAL
     Route: 040
     Dates: start: 20181115, end: 20181115

REACTIONS (1)
  - Anaphylactic shock [Recovered/Resolved]

NARRATIVE: CASE EVENT DATE: 20181115
